FAERS Safety Report 9220007 (Version 1)
Quarter: 2013Q1

REPORT INFORMATION
  Report Type: Spontaneous
  Country: US (occurrence: None)
  Receive Date: 20120830
  Receipt Date: 20120830
  Transmission Date: 20140127
  Serious: Yes (Other)
  Sender: FDA-Public Use
  Company Number: US008558

PATIENT
  Age: 41 Year
  Sex: Male

DRUGS (3)
  1. GABITRIL (TIAGABINE) [Suspect]
     Indication: CONVULSION
     Dosage: 1 IN 1 D
     Route: 048
     Dates: start: 19980504
  2. INSULIN [Concomitant]
  3. DEPAKOTE [Concomitant]

REACTIONS (2)
  - Convulsion [None]
  - Confusional state [None]
